FAERS Safety Report 23798636 (Version 1)
Quarter: 2024Q2

REPORT INFORMATION
  Report Type: Report from Study
  Country: GB (occurrence: GB)
  Receive Date: 20240430
  Receipt Date: 20240430
  Transmission Date: 20240716
  Serious: Yes (Other)
  Sender: FDA-Public Use
  Company Number: GB-MLMSERVICE-20240301-4860333-2

PATIENT
  Age: 3 Decade
  Sex: Male

DRUGS (5)
  1. RISPERIDONE [Suspect]
     Active Substance: RISPERIDONE
     Indication: Abnormal behaviour
     Dosage: UNK
     Route: 065
     Dates: end: 2022
  2. RISPERIDONE [Suspect]
     Active Substance: RISPERIDONE
     Dosage: INCREASED DURING ADMISSION
     Route: 065
     Dates: start: 2022, end: 2022
  3. ARIPIPRAZOLE [Suspect]
     Active Substance: ARIPIPRAZOLE
     Indication: Abnormal behaviour
     Dosage: UNK
     Route: 065
  4. OLANZAPINE [Suspect]
     Active Substance: OLANZAPINE
     Indication: Abnormal behaviour
     Dosage: UNK
     Route: 065
  5. PREGABALIN [Suspect]
     Active Substance: PREGABALIN
     Indication: Intellectual disability
     Dosage: UNK
     Route: 065

REACTIONS (5)
  - Hyperprolactinaemia [Unknown]
  - Akathisia [Unknown]
  - Weight increased [Unknown]
  - Drug ineffective [Unknown]
  - Off label use [Unknown]

NARRATIVE: CASE EVENT DATE: 20220101
